FAERS Safety Report 4679647-3 (Version None)
Quarter: 2005Q2

REPORT INFORMATION
  Report Type: 
  Country: None (occurrence: None)
  Receive Date: 20050531
  Receipt Date: 20050518
  Transmission Date: 20051028
  Serious: Yes (Life-Threatening)
  Sender: FDA-Public Use
  Company Number: 2005FR-00540

PATIENT
  Age: 36 Year
  Sex: Female

DRUGS (8)
  1. CIPRO [Suspect]
     Indication: RESPIRATORY TRACT INFECTION
     Dosage: 500 MG, BID , ORAL
     Route: 048
     Dates: start: 20040525, end: 20040529
  2. ASPIRIN (ASPRIN) TABLET [Concomitant]
  3. DECORTIN TABLET [Concomitant]
  4. LASIX 40 TABLET [Concomitant]
  5. ACTRAPID NOVOLET INUECTION [Concomitant]
  6. NASENSPRAY-K RATIOPHARM [Concomitant]
  7. BROMHEXIN LIQUID [Concomitant]
  8. PANTOZOL TABLET [Concomitant]

REACTIONS (1)
  - APLASTIC ANAEMIA [None]
